FAERS Safety Report 9924914 (Version 1)
Quarter: 2014Q1

REPORT INFORMATION
  Report Type: Spontaneous
  Country: US (occurrence: None)
  Receive Date: 20140224
  Receipt Date: 20140224
  Transmission Date: 20141002
  Serious: Yes (Life-Threatening, Hospitalization)
  Sender: FDA-Public Use
  Company Number: None

PATIENT
  Age: 52 Year
  Sex: Male
  Weight: 117.4 kg

DRUGS (1)
  1. INFLIXIMAB [Suspect]
     Indication: PSORIATIC ARTHROPATHY
     Dates: start: 20131115, end: 20131202

REACTIONS (1)
  - Anaphylactic reaction [None]
